FAERS Safety Report 8584755-0 (Version None)
Quarter: 2012Q3

REPORT INFORMATION
  Report Type: 
  Country: None (occurrence: None)
  Receive Date: 20120810
  Receipt Date: 20120801
  Transmission Date: 20120928
  Serious: Yes (Hospitalization)
  Sender: FDA-Public Use
  Company Number: GB-MPIJNJ-2012-04938

PATIENT

DRUGS (24)
  1. PREDNISOLONE [Concomitant]
     Dosage: 100 MG, UNK
     Route: 048
     Dates: start: 20120403
  2. VINCRISTINE [Suspect]
     Indication: DIFFUSE LARGE B-CELL LYMPHOMA
     Dosage: 2 MG, UNK
     Dates: start: 20120403, end: 20120704
  3. TRAMADOL HCL [Concomitant]
     Dosage: 100 MG, UNK
     Route: 048
     Dates: start: 20120313
  4. CHLORHEXIDINE GLUCONATE [Concomitant]
     Dosage: 10 ML, UNK
     Dates: start: 20120403
  5. DOXORUBICIN HCL [Suspect]
     Indication: DIFFUSE LARGE B-CELL LYMPHOMA
     Dosage: 100 MG, UNK
     Dates: start: 20120403, end: 20120704
  6. OMEPRAZOLE [Concomitant]
     Dosage: 20 MG, UNK
     Route: 048
     Dates: start: 20120403
  7. ITRACONAZOLE [Concomitant]
     Dosage: 200 MG, UNK
     Route: 048
     Dates: start: 20120711, end: 20120723
  8. ACYCLOVIR [Concomitant]
     Dosage: 400 MG, UNK
     Route: 048
     Dates: start: 20120403
  9. VELCADE [Suspect]
     Indication: DIFFUSE LARGE B-CELL LYMPHOMA
     Dosage: 2.6 MG, UNK
     Dates: start: 20120403, end: 20120704
  10. RITUXIMAB [Suspect]
     Indication: DIFFUSE LARGE B-CELL LYMPHOMA
     Dosage: 750 MG, UNK
     Dates: start: 20120403, end: 20120704
  11. SYMBICORT [Concomitant]
     Dosage: UNK
     Dates: start: 20120504
  12. MONTELUKAST [Concomitant]
     Dosage: 10 MG, UNK
     Route: 048
     Dates: start: 20111004
  13. CETRABEN                           /01561901/ [Concomitant]
     Dosage: UNK
     Route: 061
     Dates: start: 20091221
  14. FLUCONAZOLE [Concomitant]
     Dosage: 50 MG, UNK
     Route: 048
     Dates: start: 20120403, end: 20120711
  15. NITROFURANTOIN [Concomitant]
     Dosage: UNK
     Route: 048
     Dates: start: 20120713, end: 20120717
  16. CYCLOPHOSPHAMIDE [Suspect]
     Indication: DIFFUSE LARGE B-CELL LYMPHOMA
     Dosage: 1500 MG, UNK
     Dates: start: 20120403, end: 20120704
  17. CITALOPRAM HYDROBROMIDE [Concomitant]
     Dosage: 10 MG, UNK
     Route: 048
     Dates: start: 20080918
  18. NEO-MERCAZOLE TAB [Concomitant]
     Dosage: 5 MG, UNK
     Route: 048
     Dates: start: 20111206
  19. COTRIM [Concomitant]
     Dosage: 480 MG, UNK
     Route: 048
     Dates: start: 20120403
  20. FERROUS FUMARATE [Concomitant]
     Dosage: 210 MG, UNK
     Route: 048
     Dates: start: 20120127
  21. PREDNISOLONE [Suspect]
     Indication: DIFFUSE LARGE B-CELL LYMPHOMA
     Dosage: 100 MG, UNK
     Dates: start: 20120403, end: 20120708
  22. VENTOLIN [Concomitant]
     Dosage: UNK MG, UNK
     Dates: start: 20090406
  23. ENOXAPARIN SODIUM [Concomitant]
     Dosage: 150 MG, UNK
     Route: 058
     Dates: start: 20120423
  24. METOCLOPRAMIDE [Concomitant]
     Dosage: 20 MG, UNK
     Route: 048
     Dates: start: 20120403

REACTIONS (5)
  - DIZZINESS [None]
  - PULMONARY MYCOSIS [None]
  - DIARRHOEA [None]
  - ANAEMIA [None]
  - LETHARGY [None]
